FAERS Safety Report 7664609-4 (Version None)
Quarter: 2011Q3

REPORT INFORMATION
  Report Type: 
  Country: None (occurrence: None)
  Receive Date: 20110806
  Receipt Date: 20110105
  Transmission Date: 20111222
  Serious: No
  Sender: FDA-Public Use
  Company Number: US-ABBOTT-11P-163-0695624-00

PATIENT
  Sex: Male
  Weight: 116.22 kg

DRUGS (1)
  1. NIASPAN [Suspect]
     Indication: HIGH DENSITY LIPOPROTEIN DECREASED
     Dates: start: 20101001

REACTIONS (3)
  - FLATULENCE [None]
  - WEIGHT INCREASED [None]
  - ABDOMINAL PAIN [None]
